FAERS Safety Report 23826063 (Version 3)
Quarter: 2025Q1

REPORT INFORMATION
  Report Type: Spontaneous
  Country: US (occurrence: US)
  Receive Date: 20240507
  Receipt Date: 20250218
  Transmission Date: 20250409
  Serious: No
  Sender: PFIZER
  Company Number: US-PFIZER INC-202400100793

PATIENT
  Age: 74 Year
  Sex: Male

DRUGS (4)
  1. VYNDAMAX [Interacting]
     Active Substance: TAFAMIDIS
     Dosage: 61 MG, DAILY
     Route: 048
     Dates: start: 20230717
  2. VYNDAMAX [Interacting]
     Active Substance: TAFAMIDIS
     Dosage: 61 MG, DAILY
     Dates: start: 20240729
  3. VYNDAMAX [Interacting]
     Active Substance: TAFAMIDIS
     Dosage: ONE 61 MG TAFAMIDIS CAPSULE ORALLY ONCE DAILY
     Route: 048
  4. ROSUVASTATIN [Interacting]
     Active Substance: ROSUVASTATIN
     Indication: Blood cholesterol increased
     Dates: start: 20230717

REACTIONS (2)
  - Drug interaction [Unknown]
  - Muscle spasms [Unknown]
